FAERS Safety Report 8305354 (Version 2)
Quarter: 2013Q1

REPORT INFORMATION
  Report Type: Spontaneous
  Country: US (occurrence: US)
  Receive Date: 20111221
  Receipt Date: 20130108
  Transmission Date: 20140127
  Serious: No
  Sender: FDA-Public Use
  Company Number: US-GLAXOSMITHKLINE-A0946618A

PATIENT
  Age: 63 Year
  Sex: Male

DRUGS (1)
  1. LOVAZA [Suspect]
     Dosage: 4CAPL PER DAY
     Route: 048

REACTIONS (2)
  - Malaise [Not Recovered/Not Resolved]
  - Product quality issue [Unknown]
